FAERS Safety Report 8553343-4 (Version None)
Quarter: 2012Q3

REPORT INFORMATION
  Report Type: 
  Country: None (occurrence: None)
  Receive Date: 20120731
  Receipt Date: 20120720
  Transmission Date: 20120928
  Serious: Yes (Other)
  Sender: FDA-Public Use
  Company Number: CA-ROCHE-1050276

PATIENT
  Sex: Male

DRUGS (5)
  1. ZANTAC [Concomitant]
  2. AVASTIN [Suspect]
     Indication: GLIOBLASTOMA
     Route: 042
     Dates: start: 20110708
  3. ETOPOSIDE [Concomitant]
  4. DILANTIN [Concomitant]
  5. DECADRON [Concomitant]

REACTIONS (4)
  - ASTHENIA [None]
  - CONVULSION [None]
  - WEIGHT DECREASED [None]
  - DRUG INEFFECTIVE [None]
